FAERS Safety Report 19881144 (Version 1)
Quarter: 2021Q3

REPORT INFORMATION
  Report Type: Report from Study
  Country: IT (occurrence: IT)
  Receive Date: 20210924
  Receipt Date: 20210924
  Transmission Date: 20211014
  Serious: Yes (Other)
  Sender: FDA-Public Use
  Company Number: IT-TEVA-2021-IT-1956568

PATIENT
  Age: 62 Year
  Sex: Male

DRUGS (8)
  1. PREDNISONE. [Suspect]
     Active Substance: PREDNISONE
     Indication: PRODUCT USED FOR UNKNOWN INDICATION
     Dosage: 28 DAYS BETWEEN C1 AND C2, FROM C2 TO C6 EVERY 21 DAYS.UNIT DOSE:125MILLIGRAM
     Route: 065
     Dates: start: 20200806
  2. PREDNISONE. [Suspect]
     Active Substance: PREDNISONE
     Dosage: 25MILLIGRAM
     Route: 065
     Dates: start: 20200809, end: 20200810
  3. DOXORUBICIN [Suspect]
     Active Substance: DOXORUBICIN
     Indication: PRODUCT USED FOR UNKNOWN INDICATION
     Dosage: 28 DAYS BETWEEN C1 AND C2, FROM C2 TO C6 EVERY 21 DAYS.UNIT DOSE:89MILLIGRAM
     Route: 065
     Dates: start: 20200806
  4. PREDNISONE. [Suspect]
     Active Substance: PREDNISONE
     Dosage: 50MILLIGRAM
     Route: 065
     Dates: start: 20200807, end: 20200808
  5. VINCRISTINE [Suspect]
     Active Substance: VINCRISTINE
     Indication: PRODUCT USED FOR UNKNOWN INDICATION
     Dosage: 28 DAYS BETWEEN C1 AND C2, FROM C2 TO C6 EVERY 21 DAYS.UNIT DOSE:1MILLIGRAM
     Route: 065
     Dates: start: 20200806
  6. CYCLOPHOSPHAMIDE. [Suspect]
     Active Substance: CYCLOPHOSPHAMIDE
     Indication: PRODUCT USED FOR UNKNOWN INDICATION
     Dosage: 28 DAYS BETWEEN C1 AND C2, FROM C2 TO C6 EVERY 21 DAYS.UNIT DOSE:1340MILLIGRAM
     Route: 065
     Dates: start: 20200806
  7. OBINUTUZUMAB. [Suspect]
     Active Substance: OBINUTUZUMAB
     Indication: FOLLICULAR LYMPHOMA
     Route: 042
     Dates: start: 20200806
  8. OBINUTUZUMAB. [Suspect]
     Active Substance: OBINUTUZUMAB
     Route: 042
     Dates: start: 20200813

REACTIONS (4)
  - Neutropenia [Recovered/Resolved]
  - Off label use [Unknown]
  - Neutropenia [Recovered/Resolved]
  - Off label use [Unknown]

NARRATIVE: CASE EVENT DATE: 20201009
